FAERS Safety Report 18800631 (Version 1)
Quarter: 2021Q1

REPORT INFORMATION
  Report Type: Spontaneous
  Country: US (occurrence: US)
  Receive Date: 20210128
  Receipt Date: 20210128
  Transmission Date: 20210419
  Serious: Yes (Other)
  Sender: FDA-Public Use
  Company Number: US-ABBVIE-20K-163-3705952-00

PATIENT
  Sex: Male

DRUGS (1)
  1. LUPRON DEPOT [Suspect]
     Active Substance: LEUPROLIDE ACETATE
     Indication: PROSTATE CANCER
     Route: 065
     Dates: end: 202008

REACTIONS (5)
  - Weight increased [Unknown]
  - Prostate cancer [Unknown]
  - Mood swings [Unknown]
  - Gynaecomastia [Unknown]
  - Prostatic specific antigen increased [Unknown]
